FAERS Safety Report 4554764-7 (Version None)
Quarter: 2005Q1

REPORT INFORMATION
  Report Type: 
  Country: None (occurrence: None)
  Receive Date: 20050118
  Receipt Date: 20041119
  Transmission Date: 20050727
  Serious: Yes (Death, Hospitalization)
  Sender: FDA-Public Use
  Company Number: FR-GLAXOSMITHKLINE-B0357648A

PATIENT
  Age: 73 Year
  Sex: Female

DRUGS (11)
  1. DEROXAT [Suspect]
     Indication: DEPRESSION
     Route: 048
     Dates: end: 20040930
  2. SINGULAIR [Suspect]
     Indication: BRONCHOPNEUMOPATHY
     Route: 048
     Dates: end: 20040930
  3. PLAVIX [Suspect]
     Indication: ILL-DEFINED DISORDER
     Route: 048
     Dates: end: 20040926
  4. SPIRONOLACTONE [Concomitant]
     Indication: ESSENTIAL HYPERTENSION
     Route: 048
     Dates: end: 20040930
  5. EUPRESSYL [Concomitant]
     Indication: ESSENTIAL HYPERTENSION
     Route: 048
     Dates: end: 20040930
  6. VERAPAMIL [Concomitant]
     Indication: ESSENTIAL HYPERTENSION
     Route: 048
     Dates: end: 20040930
  7. ALLOPURINOL [Concomitant]
     Dates: end: 20040930
  8. OROCAL [Concomitant]
     Indication: OSTEOARTHRITIS
     Dates: end: 20040930
  9. PROPOFAN [Concomitant]
     Indication: OSTEOARTHRITIS
     Dates: end: 20040930
  10. VOGALENE [Concomitant]
     Indication: ILL-DEFINED DISORDER
     Dates: end: 20040930
  11. SYMBICORT [Concomitant]
     Indication: BRONCHOPNEUMOPATHY
     Dates: end: 20041230

REACTIONS (4)
  - BRAIN HERNIATION [None]
  - BRAIN OEDEMA [None]
  - CEREBRAL HAEMATOMA [None]
  - HAEMORRHAGIC STROKE [None]
